FAERS Safety Report 11052057 (Version 2)
Quarter: 2015Q2

REPORT INFORMATION
  Report Type: Report from Study
  Country: US (occurrence: US)
  Receive Date: 20150421
  Receipt Date: 20150429
  Transmission Date: 20150821
  Serious: Yes (Death, Hospitalization, Other)
  Sender: FDA-Public Use
  Company Number: US-BAYER-2015-135785

PATIENT
  Age: 48 Year
  Sex: Male

DRUGS (2)
  1. STIVARGA [Suspect]
     Active Substance: REGORAFENIB
     Indication: BONE CANCER
  2. STIVARGA [Suspect]
     Active Substance: REGORAFENIB
     Indication: COLON CANCER
     Dosage: DAILY DOSE 160 MG
     Route: 048
     Dates: start: 20150314, end: 20150404

REACTIONS (6)
  - Decreased appetite [None]
  - Weight decreased [None]
  - Death [Fatal]
  - Abdominal distension [None]
  - Fluid retention [None]
  - Pneumonia [None]

NARRATIVE: CASE EVENT DATE: 20150316
